FAERS Safety Report 7766128-3 (Version None)
Quarter: 2011Q3

REPORT INFORMATION
  Report Type: 
  Country: None (occurrence: None)
  Receive Date: 20110921
  Receipt Date: 20110919
  Transmission Date: 20111222
  Serious: Yes (Disabling)
  Sender: FDA-Public Use
  Company Number: IT-PFIZER INC-2011222265

PATIENT
  Age: 53 Year
  Sex: Female

DRUGS (4)
  1. CYCLOPHOSPHAMIDE [Suspect]
     Indication: BREAST CANCER FEMALE
     Dosage: UNK
     Dates: start: 20090901, end: 20091130
  2. FLUOROURACIL [Suspect]
     Indication: BREAST CANCER FEMALE
     Dosage: UNK
     Dates: start: 20090901, end: 20091130
  3. DOXORUBICIN HCL [Suspect]
     Indication: BREAST CANCER FEMALE
     Dosage: UNK
     Dates: start: 20090901, end: 20091130
  4. DOCETAXEL [Suspect]
     Indication: BREAST CANCER FEMALE
     Dosage: UNK
     Dates: start: 20090901, end: 20091130

REACTIONS (2)
  - AGEUSIA [None]
  - ANOSMIA [None]
